FAERS Safety Report 12253731 (Version 1)
Quarter: 2016Q2

REPORT INFORMATION
  Report Type: Spontaneous
  Country: US (occurrence: None)
  Receive Date: 20160408
  Receipt Date: 20160408
  Transmission Date: 20160815
  Serious: No
  Sender: FDA-Public Use
  Company Number: None

PATIENT
  Sex: Female
  Weight: 72.58 kg

DRUGS (1)
  1. STELARA [Suspect]
     Active Substance: USTEKINUMAB
     Indication: PSORIATIC ARTHROPATHY
     Dosage: 45 SQ EVERY 12 WEEKS SQ
     Route: 058
     Dates: start: 201601, end: 201603

REACTIONS (3)
  - Inflammation [None]
  - Arthritis [None]
  - Pain [None]
